FAERS Safety Report 7809300-6 (Version None)
Quarter: 2011Q4

REPORT INFORMATION
  Report Type: 
  Country: None (occurrence: None)
  Receive Date: 20111006
  Receipt Date: 20110923
  Transmission Date: 20120403
  Serious: Yes (Other)
  Sender: FDA-Public Use
  Company Number: LTI2011A00185

PATIENT
  Age: 67 Year
  Sex: Male

DRUGS (5)
  1. VALSARTAN AND HYDROCHLOROTHIAZIDE [Concomitant]
  2. NEBILOX (NEBIVOLOL HYDROCHLORIDE) [Concomitant]
  3. CADUET [Concomitant]
  4. LANSOPRAZOLE [Concomitant]
  5. PIOGLITAZONE HYDROCHLORIDE AND METFORMIN HYDROCHLORIDE [Suspect]
     Indication: TYPE 2 DIABETES MELLITUS
     Dosage: 2 TAB. (1 TAB., 2 IN 1 D) ORAL
     Route: 048
     Dates: start: 20090715, end: 20110322

REACTIONS (1)
  - BLADDER TRANSITIONAL CELL CARCINOMA [None]
